FAERS Safety Report 7328327-4 (Version None)
Quarter: 2011Q1

REPORT INFORMATION
  Report Type: 
  Country: None (occurrence: None)
  Receive Date: 20110303
  Receipt Date: 20110217
  Transmission Date: 20110831
  Serious: Yes (Hospitalization)
  Sender: FDA-Public Use
  Company Number: FR-MYLANLABS-2011S1003537

PATIENT
  Age: 31 Year
  Sex: Male

DRUGS (1)
  1. KETAMINE HCL [Suspect]
     Dosage: SUSPECTED UPTAKE BY INSUFFLATIONS
     Route: 065

REACTIONS (4)
  - MYOCARDITIS [None]
  - INTENTIONAL DRUG MISUSE [None]
  - OVERDOSE [None]
  - ELECTROCARDIOGRAM ABNORMAL [None]
